FAERS Safety Report 21991500 (Version 1)
Quarter: 2023Q1

REPORT INFORMATION
  Report Type: Spontaneous
  Country: US (occurrence: None)
  Receive Date: 20230213
  Receipt Date: 20230213
  Transmission Date: 20230417
  Serious: No
  Sender: FDA-Public Use
  Company Number: None

PATIENT
  Age: 37 Year
  Sex: Female

DRUGS (1)
  1. KESIMPTA [Suspect]
     Active Substance: OFATUMUMAB
     Indication: Multiple sclerosis
     Route: 058
     Dates: start: 20230205

REACTIONS (5)
  - Tremor [None]
  - Feeling abnormal [None]
  - Drooling [None]
  - Amnesia [None]
  - Feeling abnormal [None]

NARRATIVE: CASE EVENT DATE: 20230212
